FAERS Safety Report 13464646 (Version 1)
Quarter: 2017Q2

REPORT INFORMATION
  Report Type: Spontaneous
  Country: US (occurrence: US)
  Receive Date: 20170420
  Receipt Date: 20170420
  Transmission Date: 20170830
  Serious: Yes (Other)
  Sender: FDA-Public Use
  Company Number: US-ROCHE-702777

PATIENT
  Age: 30 Year
  Sex: Female
  Weight: 71.7 kg

DRUGS (2)
  1. ACCUTANE [Suspect]
     Active Substance: ISOTRETINOIN
     Indication: ACNE
     Dosage: ALTERNATING DOSAGE
     Route: 048
  2. ACCUTANE [Suspect]
     Active Substance: ISOTRETINOIN
     Route: 048
     Dates: start: 20000224, end: 20000430

REACTIONS (6)
  - Depression [Recovered/Resolved]
  - Colitis ulcerative [Unknown]
  - Headache [Recovered/Resolved]
  - Iron deficiency anaemia [Unknown]
  - Dry skin [Unknown]
  - Inflammatory bowel disease [Unknown]

NARRATIVE: CASE EVENT DATE: 19991102
